FAERS Safety Report 6944438-7 (Version None)
Quarter: 2010Q3

REPORT INFORMATION
  Report Type: 
  Country: None (occurrence: None)
  Receive Date: 20100827
  Receipt Date: 20100818
  Transmission Date: 20110219
  Serious: Yes (Death, Other)
  Sender: FDA-Public Use
  Company Number: US-PFIZER INC-2010096058

PATIENT
  Age: 49 Year
  Sex: Male

DRUGS (2)
  1. ALPRAZOLAM [Suspect]
     Dosage: UNK
  2. METHADONE [Suspect]
     Dosage: UNK

REACTIONS (3)
  - DEATH [None]
  - DRUG ABUSE [None]
  - DRUG TOXICITY [None]
